FAERS Safety Report 9459658 (Version 1)
Quarter: 2013Q3

REPORT INFORMATION
  Report Type: Spontaneous
  Country: SE (occurrence: SE)
  Receive Date: 20130815
  Receipt Date: 20130815
  Transmission Date: 20140515
  Serious: Yes (Other)
  Sender: FDA-Public Use
  Company Number: SE-JNJFOC-20130806932

PATIENT
  Age: 16 Year
  Sex: Female

DRUGS (1)
  1. SIMPONI [Suspect]
     Indication: JUVENILE IDIOPATHIC ARTHRITIS
     Route: 058
     Dates: start: 201111, end: 201304

REACTIONS (1)
  - Crohn^s disease [Not Recovered/Not Resolved]
